FAERS Safety Report 8943579 (Version 1)
Quarter: 2012Q4

REPORT INFORMATION
  Report Type: 
  Country: JP (occurrence: JP)
  Receive Date: 20121203
  Receipt Date: 20121203
  Transmission Date: 20130627
  Serious: Yes (Hospitalization, Other)
  Sender: FDA-Public Use
  Company Number: JP-B.I. PHARMACEUTICALS,INC./RIDGEFIELD-2012-BP-26512NB

PATIENT
  Age: 72 Year
  Sex: Male

DRUGS (8)
  1. MICOMBI COMBINATION [Suspect]
     Indication: HYPERTENSION
     Route: 048
     Dates: start: 20120806, end: 20121015
  2. ACTOS [Suspect]
     Indication: DIABETES MELLITUS
     Dosage: 30 mg
     Route: 048
     Dates: start: 20080419, end: 20121030
  3. GASTER [Suspect]
     Indication: PROPHYLAXIS AGAINST GASTROINTESTINAL ULCER
     Dosage: 40 mg
     Route: 048
     Dates: start: 20091102, end: 20121030
  4. STARSIS [Concomitant]
     Indication: DIABETES MELLITUS
     Dosage: 270 mg
     Route: 048
     Dates: start: 20080111
  5. BASEN OD [Concomitant]
     Indication: DIABETES MELLITUS
     Dosage: 0.9 mg
     Route: 048
     Dates: start: 20070908
  6. CRESTOR [Concomitant]
     Indication: DYSLIPIDAEMIA
     Dosage: 2.5 mg
     Route: 048
     Dates: start: 20070908
  7. WARFARIN [Concomitant]
     Indication: ATRIAL FIBRILLATION
     Dosage: 4 mg
     Route: 048
     Dates: start: 20070915
  8. NORVASC OD [Concomitant]
     Indication: HYPERTENSION
     Dosage: 5 mg
     Route: 048
     Dates: start: 20120806

REACTIONS (2)
  - Pyrexia [Not Recovered/Not Resolved]
  - Pneumonia [Not Recovered/Not Resolved]
